FAERS Safety Report 21568437 (Version 1)
Quarter: 2022Q4

REPORT INFORMATION
  Report Type: Spontaneous
  Country: US (occurrence: None)
  Receive Date: 20221107
  Receipt Date: 20221107
  Transmission Date: 20230113
  Serious: Yes (Hospitalization)
  Sender: FDA-Public Use
  Company Number: None

PATIENT
  Age: 59 Year
  Sex: Male
  Weight: 114.31 kg

DRUGS (1)
  1. LISINOPRIL [Suspect]
     Active Substance: LISINOPRIL
     Indication: Hypertension
     Dosage: 5 MG EVERY DAY PO?
     Route: 048
     Dates: start: 20211018, end: 20220901

REACTIONS (5)
  - Pyrexia [None]
  - Dysphonia [None]
  - Lip blister [None]
  - Angioedema [None]
  - Sinus disorder [None]

NARRATIVE: CASE EVENT DATE: 20220829
